FAERS Safety Report 10019878 (Version 1)
Quarter: 2014Q1

REPORT INFORMATION
  Report Type: Spontaneous
  Country: US (occurrence: US)
  Receive Date: 20140318
  Receipt Date: 20140318
  Transmission Date: 20141002
  Serious: No
  Sender: FDA-Public Use
  Company Number: US-GALDERMA-US14000106

PATIENT
  Age: 44 Year
  Sex: Female

DRUGS (4)
  1. MIRVASO (BRIMONIDINE) TOPICAL GEL, 0.33% [Suspect]
     Indication: ROSACEA
     Dosage: 0.33%
     Route: 061
     Dates: start: 20131224, end: 20131226
  2. DOXYCYCLINE [Concomitant]
     Indication: ROSACEA
     Dosage: 50 MG
     Route: 048
     Dates: start: 20131224
  3. FACE CREAM [Concomitant]
     Indication: ROSACEA
     Route: 061
     Dates: start: 201312
  4. FINACEA (AZELAIC ACID) GEL, 15% [Concomitant]
     Indication: ROSACEA
     Dosage: 15%
     Route: 061
     Dates: start: 201312, end: 201312

REACTIONS (7)
  - Pallor [Recovered/Resolved]
  - Feeling hot [Recovered/Resolved]
  - Erythema [Recovered/Resolved]
  - Skin burning sensation [Recovered/Resolved]
  - Flushing [Recovered/Resolved]
  - Dermatitis [Recovered/Resolved]
  - Inappropriate schedule of drug administration [Recovered/Resolved]
